FAERS Safety Report 5314514-3 (Version None)
Quarter: 2007Q2

REPORT INFORMATION
  Report Type: 
  Country: None (occurrence: None)
  Receive Date: 20070427
  Receipt Date: 20070409
  Transmission Date: 20071010
  Serious: Yes (Hospitalization, Other)
  Sender: FDA-Public Use
  Company Number: 012821

PATIENT
  Age: 39 Year
  Sex: Male

DRUGS (8)
  1. PRIALT [Suspect]
     Indication: ARTHROPATHY
     Dosage: SEE IMAGE
     Route: 037
     Dates: end: 20061001
  2. PRIALT [Suspect]
     Indication: NEURALGIA
     Dosage: SEE IMAGE
     Route: 037
     Dates: end: 20061001
  3. PRIALT [Suspect]
     Indication: ARTHROPATHY
     Dosage: SEE IMAGE
     Route: 037
     Dates: end: 20070201
  4. PRIALT [Suspect]
     Indication: NEURALGIA
     Dosage: SEE IMAGE
     Route: 037
     Dates: end: 20070201
  5. PRIALT [Suspect]
     Indication: ARTHROPATHY
     Dosage: SEE IMAGE
     Route: 037
     Dates: start: 20061001
  6. PRIALT [Suspect]
     Indication: NEURALGIA
     Dosage: SEE IMAGE
     Route: 037
     Dates: start: 20061001
  7. MORPHINE [Concomitant]
  8. LYRICA [Concomitant]

REACTIONS (11)
  - APPENDICITIS PERFORATED [None]
  - HALLUCINATION, AUDITORY [None]
  - INADEQUATE ANALGESIA [None]
  - LOGORRHOEA [None]
  - MENTAL DISORDER [None]
  - OEDEMA PERIPHERAL [None]
  - PARAESTHESIA ORAL [None]
  - PRURITUS GENERALISED [None]
  - SENSORY DISTURBANCE [None]
  - SEPSIS [None]
  - SOMATIC DELUSION [None]
